FAERS Safety Report 20697902 (Version 3)
Quarter: 2023Q1

REPORT INFORMATION
  Report Type: Report from Study
  Country: US (occurrence: US)
  Receive Date: 20220412
  Receipt Date: 20230227
  Transmission Date: 20230417
  Serious: Yes (Other)
  Sender: FDA-Public Use
  Company Number: US-ABBVIE-22K-163-4352247-00

PATIENT
  Age: 60 Year
  Sex: Male

DRUGS (1)
  1. SKYRIZI [Suspect]
     Active Substance: RISANKIZUMAB-RZAA
     Indication: Psoriasis
     Route: 058
     Dates: start: 20210809, end: 20220330

REACTIONS (1)
  - Squamous cell carcinoma of skin [Recovering/Resolving]

NARRATIVE: CASE EVENT DATE: 20220129
